FAERS Safety Report 6971135-4 (Version None)
Quarter: 2010Q3

REPORT INFORMATION
  Report Type: 
  Country: None (occurrence: None)
  Receive Date: 20100908
  Receipt Date: 20100827
  Transmission Date: 20110219
  Serious: Yes (Hospitalization)
  Sender: FDA-Public Use
  Company Number: US-JNJFOC-20100302322

PATIENT
  Sex: Female
  Weight: 102 kg

DRUGS (18)
  1. TAPENTADOL [Suspect]
     Route: 048
  2. TAPENTADOL [Suspect]
     Indication: DIABETIC NEUROPATHY
     Route: 048
  3. TAPENTADOL [Suspect]
     Route: 048
  4. TAPENTADOL [Suspect]
     Indication: DIABETIC NEUROPATHY
     Route: 048
  5. PLACEBO [Suspect]
     Indication: DIABETIC NEUROPATHY
     Route: 048
  6. METANX [Concomitant]
     Indication: NUTRITIONAL SUPPORT
     Dosage: TWICE DAILY
     Route: 048
  7. MULTIVITAMINES [Concomitant]
     Indication: NUTRITIONAL SUPPORT
     Dosage: EVERY DAY
     Route: 048
  8. PLAVIX [Concomitant]
     Indication: CARDIOVASCULAR EVENT PROPHYLAXIS
     Dosage: EVERY DAY
     Route: 048
  9. NPH INSULIN [Concomitant]
     Indication: DIABETES MELLITUS
     Dosage: TWICE DAILY
     Route: 058
  10. NOVOLOG [Concomitant]
     Indication: DIABETES MELLITUS
     Dosage: EVERY DAY
     Route: 058
  11. NEXIUM [Concomitant]
     Indication: GASTROOESOPHAGEAL REFLUX DISEASE
     Dosage: EVERY DAY
  12. LASIX [Concomitant]
     Indication: OEDEMA
     Dosage: EVERY DAY
     Route: 048
  13. GLUCOTROL [Concomitant]
     Indication: DIABETES MELLITUS
     Dosage: EVERY DAY
     Route: 048
  14. GLUCOPHAGE [Concomitant]
     Indication: DIABETES MELLITUS
     Dosage: EVERY DAY
     Route: 048
  15. ATENOLOL [Concomitant]
     Indication: HYPERTENSION
     Dosage: EVERY DAY
     Route: 048
  16. LIPITOR [Concomitant]
     Indication: HYPERCHOLESTEROLAEMIA
     Dosage: EVERY DAY
     Route: 048
  17. ROBAXIN [Concomitant]
     Route: 065
  18. ALLEGRA [Concomitant]
     Route: 065

REACTIONS (3)
  - CHEST PAIN [None]
  - DEHYDRATION [None]
  - PRESYNCOPE [None]
